FAERS Safety Report 12172610 (Version 1)
Quarter: 2016Q1

REPORT INFORMATION
  Report Type: Spontaneous
  Country: US (occurrence: US)
  Receive Date: 20160311
  Receipt Date: 20160311
  Transmission Date: 20160526
  Serious: Yes (Other)
  Sender: FDA-Public Use
  Company Number: PHHY2016US030066

PATIENT
  Age: 14 Year
  Sex: Female

DRUGS (1)
  1. CAFFEINE CITRATE,ERGOTAMINE TARTRATE [Suspect]
     Active Substance: CAFFEINE CITRATE\ERGOTAMINE TARTRATE
     Indication: PRODUCT USED FOR UNKNOWN INDICATION
     Dosage: 100 DF (ERGOTAMINE 1 MG/CAFFEINE 100 MG COMBINATION TABLETS), UNK
     Route: 048

REACTIONS (2)
  - Suicidal ideation [Unknown]
  - Vomiting [Recovered/Resolved]
